FAERS Safety Report 7626370-9 (Version None)
Quarter: 2011Q3

REPORT INFORMATION
  Report Type: 
  Country: None (occurrence: None)
  Receive Date: 20110714
  Receipt Date: 20110701
  Transmission Date: 20111222
  Serious: Yes (Life-Threatening)
  Sender: FDA-Public Use
  Company Number: 969054

PATIENT
  Age: 55 Year
  Sex: Male
  Weight: 76.8 kg

DRUGS (4)
  1. NIPENT [Suspect]
     Indication: CHRONIC LYMPHOCYTIC LEUKAEMIA
     Dosage: 45.5 MG TOTAL DOSE
     Dates: start: 20100913, end: 20110202
  2. CYCLOPHOSPHAMIDE [Suspect]
     Indication: CHRONIC LYMPHOCYTIC LEUKAEMIA
     Dosage: 6798 MG TOTAL DOSE
     Dates: start: 20100913, end: 20110202
  3. (RITUXIMAB) [Suspect]
     Indication: CHRONIC LYMPHOCYTIC LEUKAEMIA
     Dosage: 5063 MG TOTAL DOSE
     Dates: start: 20100913, end: 20110202
  4. CAMPATH [Suspect]
     Indication: CHRONIC LYMPHOCYTIC LEUKAEMIA
     Dosage: 90 MG TOTAL DOSE
     Dates: start: 20110516, end: 20110615

REACTIONS (4)
  - PYREXIA [None]
  - CHILLS [None]
  - SINUS CONGESTION [None]
  - LYMPHOPENIA [None]
